FAERS Safety Report 5827145-3 (Version None)
Quarter: 2008Q3

REPORT INFORMATION
  Report Type: 
  Country: None (occurrence: None)
  Receive Date: 20080729
  Receipt Date: 20080729
  Transmission Date: 20090109
  Serious: No
  Sender: FDA-Public Use
  Company Number: None

PATIENT
  Age: 39 Year
  Sex: Female
  Weight: 68.0396 kg

DRUGS (1)
  1. KENALOG-40 [Suspect]
     Indication: ALOPECIA
     Dosage: 2 DOSES ONCE EVERY 2 WEEKS IM
     Route: 030
     Dates: start: 20080611, end: 20080625

REACTIONS (5)
  - ARTHROPATHY [None]
  - ATROPHY [None]
  - DRUG INEFFECTIVE [None]
  - MUSCULOSKELETAL PAIN [None]
  - ROTATOR CUFF SYNDROME [None]
